FAERS Safety Report 22596137 (Version 1)
Quarter: 2023Q2

REPORT INFORMATION
  Report Type: Spontaneous
  Country: US (occurrence: None)
  Receive Date: 20230612
  Receipt Date: 20230612
  Transmission Date: 20230722
  Serious: Yes (Death)
  Sender: FDA-Public Use
  Company Number: None

PATIENT
  Age: 98 Year
  Sex: Male

DRUGS (1)
  1. PROMACTA [Suspect]
     Active Substance: ELTROMBOPAG OLAMINE
     Dosage: 25MG ORAL? DIRECTIONS: MIX AND DRINK 1 PACKET PO TWICE WEEKLY 1 HOUR BEFORE A MEAL?
     Route: 048
     Dates: start: 20211021

REACTIONS (1)
  - Palliative care [None]

NARRATIVE: CASE EVENT DATE: 20230502
